FAERS Safety Report 23947851 (Version 1)
Quarter: 2024Q2

REPORT INFORMATION
  Report Type: Report from Study
  Country: IN (occurrence: IN)
  Receive Date: 20240606
  Receipt Date: 20240606
  Transmission Date: 20240716
  Serious: Yes (Death, Hospitalization, Other)
  Sender: FDA-Public Use
  Company Number: IN-CIPLA LTD.-2024IN05560

PATIENT

DRUGS (6)
  1. SACUBITRIL\VALSARTAN [Suspect]
     Active Substance: SACUBITRIL\VALSARTAN
     Indication: Product used for unknown indication
     Dosage: DOSE USED- 1 UNITS UNSPECIFIED, FREQUENCY - 2 UNITS UNSPECIFIED (STRENGTH: 50 MG)
     Route: 048
     Dates: start: 20240204, end: 20240513
  2. WARFARIN [Suspect]
     Active Substance: WARFARIN
     Indication: Product used for unknown indication
     Dosage: DOSE USED- 1 UNITS UNSPECIFIED, FREQUENCY - 1 UNITS UNSPECIFIED
     Route: 048
     Dates: start: 20240204, end: 20240513
  3. DAPAGLIFLOZIN [Suspect]
     Active Substance: DAPAGLIFLOZIN
     Indication: Product used for unknown indication
     Dosage: DOSE USED- 1 UNITS UNSPECIFIED, FREQUENCY - 1 UNITS UNSPECIFIED
     Route: 048
     Dates: start: 20240204, end: 20240513
  4. ASPIRIN\ATORVASTATIN [Concomitant]
     Active Substance: ASPIRIN\ATORVASTATIN
     Indication: Product used for unknown indication
     Dosage: UNK (ONLY FOR 1 MONTH) (STRENGTH: 75 MG)
     Route: 065
  5. PNEUMOVAX 23 [Concomitant]
     Active Substance: PNEUMOCOCCAL VACCINE, POLYVALENT 23
     Indication: Product used for unknown indication
     Dosage: UNK
     Route: 065
  6. INFLUVAC TETRA [Concomitant]
     Active Substance: INFLUENZA VIRUS VACCINE QUADRIVALENT TYPE A+B
     Indication: Product used for unknown indication
     Dosage: UNK
     Route: 065

REACTIONS (2)
  - Cerebrovascular accident [Fatal]
  - Blood pressure fluctuation [Unknown]

NARRATIVE: CASE EVENT DATE: 20240101
